FAERS Safety Report 5194679-7 (Version None)
Quarter: 2006Q4

REPORT INFORMATION
  Report Type: 
  Country: None (occurrence: None)
  Receive Date: 20061222
  Receipt Date: 20061222
  Transmission Date: 20070319
  Serious: Yes (Hospitalization)
  Sender: FDA-Public Use
  Company Number: None

PATIENT
  Age: 18 Year
  Sex: Male
  Weight: 79 kg

DRUGS (1)
  1. HYDROCODONE BITARTRATE + ACETAMINOPHEN [Suspect]
     Indication: PAIN
     Dosage: PO
     Route: 048
     Dates: start: 20060818

REACTIONS (8)
  - DIZZINESS [None]
  - FALL [None]
  - FLUID INTAKE REDUCED [None]
  - HEADACHE [None]
  - LOSS OF CONSCIOUSNESS [None]
  - SKIN LACERATION [None]
  - SWELLING FACE [None]
  - VISION BLURRED [None]
